FAERS Safety Report 8633661 (Version 3)
Quarter: 2012Q4

REPORT INFORMATION
  Report Type: Report from Study
  Country: US (occurrence: US)
  Receive Date: 20120625
  Receipt Date: 20121101
  Transmission Date: 20130627
  Serious: Yes (Hospitalization, Other)
  Sender: FDA-Public Use
  Company Number: US-ABBOTT-12P-163-0946343-00

PATIENT
  Age: 45 None
  Sex: Male
  Weight: 56.75 kg

DRUGS (6)
  1. HUMIRA 40 MG/0.8 ML PEN [Suspect]
     Indication: CROHN^S DISEASE
     Route: 058
     Dates: start: 201106
  2. HUMIRA 40 MG/0.8 ML PEN [Suspect]
     Route: 058
     Dates: start: 20120613, end: 20120725
  3. LANSOPRAZOLE [Concomitant]
     Indication: GASTROOESOPHAGEAL REFLUX DISEASE
  4. LEXAPRO [Concomitant]
     Indication: DEPRESSION
  5. TRAZADONE [Concomitant]
     Indication: DEPRESSION
  6. PERCOCET [Concomitant]
     Indication: ABDOMINAL PAIN
     Dates: start: 20120611

REACTIONS (10)
  - Intestinal obstruction [Recovering/Resolving]
  - Gastric ulcer [Recovering/Resolving]
  - Abdominal pain [Recovering/Resolving]
  - Gastritis erosive [Not Recovered/Not Resolved]
  - Paraesthesia [Not Recovered/Not Resolved]
  - Gastritis [Unknown]
  - Anxiety [Unknown]
  - Cervicobrachial syndrome [Unknown]
  - Pancreatitis [Unknown]
  - Intestinal stenosis [Recovering/Resolving]
